FAERS Safety Report 8855356 (Version 1)
Quarter: 2012Q4

REPORT INFORMATION
  Report Type: 
  Country: US (occurrence: US)
  Receive Date: 20121023
  Receipt Date: 20121023
  Transmission Date: 20130627
  Serious: No
  Sender: FDA-Public Use
  Company Number: US-AMGEN-USASP2012059446

PATIENT
  Age: 8 Year
  Sex: Female
  Weight: 24 kg

DRUGS (2)
  1. ENBREL [Suspect]
     Indication: JUVENILE ARTHRITIS
     Dosage: 25 mg, 2 times/wk
     Route: 058
     Dates: start: 20120515
  2. MELOXICAM [Concomitant]
     Indication: ARTHRITIS
     Dosage: 7.5 mg, daily
     Route: 048
     Dates: start: 20120515

REACTIONS (6)
  - Pyrexia [Recovered/Resolved]
  - Screaming [Recovered/Resolved]
  - Ear infection [Recovered/Resolved]
  - Limb prosthesis user [Recovered/Resolved]
  - Injection site pain [Not Recovered/Not Resolved]
  - Injection site bruising [Recovered/Resolved]
